FAERS Safety Report 13603146 (Version 1)
Quarter: 2017Q2

REPORT INFORMATION
  Report Type: Spontaneous
  Country: JP (occurrence: JP)
  Receive Date: 20170601
  Receipt Date: 20170601
  Transmission Date: 20170830
  Serious: Yes (Life-Threatening, Hospitalization, Other)
  Sender: FDA-Public Use
  Company Number: JP-BAYER-2017-101879

PATIENT
  Sex: Male
  Weight: .55 kg

DRUGS (2)
  1. ACETYLSALICYLIC ACID({=100 MG) [Suspect]
     Active Substance: ASPIRIN
     Dosage: UNK
     Route: 064
  2. HEPARIN [Suspect]
     Active Substance: HEPARIN SODIUM
     Dosage: UNK

REACTIONS (6)
  - Foetal growth restriction [None]
  - Low birth weight baby [None]
  - Premature baby [None]
  - Acute respiratory distress syndrome [None]
  - Foetal disorder [None]
  - Foetal exposure during pregnancy [None]
